FAERS Safety Report 11999520 (Version 1)
Quarter: 2016Q1

REPORT INFORMATION
  Report Type: Spontaneous
  Country: US (occurrence: None)
  Receive Date: 20160203
  Receipt Date: 20160203
  Transmission Date: 20160526
  Serious: Yes (Other)
  Sender: FDA-Public Use
  Company Number: None

PATIENT
  Age: 18 Year
  Sex: Female
  Weight: 60.6 kg

DRUGS (1)
  1. GENERIC TOPAMAX [Suspect]
     Active Substance: TOPIRAMATE
     Indication: IDIOPATHIC PARTIAL EPILEPSY
     Route: 048
     Dates: start: 2013

REACTIONS (3)
  - Product substitution issue [None]
  - No therapeutic response [None]
  - Seizure [None]
